FAERS Safety Report 15667739 (Version 2)
Quarter: 2019Q2

REPORT INFORMATION
  Report Type: Report from Study
  Country: AT (occurrence: AT)
  Receive Date: 20181128
  Receipt Date: 20190627
  Transmission Date: 20190711
  Serious: Yes (Hospitalization, Other)
  Sender: FDA-Public Use
  Company Number: AT-BRISTOL-MYERS SQUIBB COMPANY-BMS-2018-106740

PATIENT
  Age: 78 Year
  Sex: Female
  Weight: 61.4 kg

DRUGS (12)
  1. OPTINEM [Concomitant]
     Active Substance: MEROPENEM
     Indication: C-REACTIVE PROTEIN INCREASED
     Dosage: 2 G, UNK
     Route: 042
     Dates: start: 20180929, end: 20181010
  2. CLAVAMOX                           /02043401/ [Concomitant]
     Indication: SINUSITIS
     Dosage: 1 TAB, UNK
     Route: 048
     Dates: start: 20180727, end: 20180730
  3. PERFALGAN [Concomitant]
     Active Substance: ACETAMINOPHEN
     Indication: PYREXIA
     Dosage: 1 G, UNK
     Route: 042
     Dates: start: 20180929, end: 20181002
  4. IBUPROFEN. [Concomitant]
     Active Substance: IBUPROFEN
     Indication: ARTHRITIS
     Dosage: 120 MG, UNK
     Route: 048
     Dates: start: 20180831, end: 20180904
  5. ULSAL [Concomitant]
     Active Substance: RANITIDINE HYDROCHLORIDE
     Indication: PROPHYLAXIS
     Dosage: 300 MG, UNK
     Route: 048
     Dates: start: 20180926
  6. OSPEXIN [Concomitant]
     Indication: METASTASES TO SKIN
     Dosage: 1000 MG, UNK
     Route: 048
     Dates: start: 20170731, end: 20170807
  7. ZINNAT                             /00454602/ [Concomitant]
     Active Substance: CEFUROXIME SODIUM
     Indication: BRONCHITIS
     Dosage: 250 MG, UNK
     Route: 048
     Dates: start: 20180720, end: 20180726
  8. TEBOFORTAN [Concomitant]
     Active Substance: GINKGO
     Indication: PRODUCT USED FOR UNKNOWN INDICATION
     Dosage: 80 MG, UNK
     Route: 048
     Dates: start: 20180926
  9. KYTRIL [Concomitant]
     Active Substance: GRANISETRON HYDROCHLORIDE
     Indication: PROPHYLAXIS
     Dosage: 3 MG, UNK
     Route: 042
     Dates: start: 20180927, end: 20181001
  10. IPILIMUMAB [Suspect]
     Active Substance: IPILIMUMAB
     Indication: MALIGNANT MELANOMA
     Dosage: 184.80 ABSENT, UNK
     Route: 065
     Dates: start: 20170710
  11. NIVOLUMAB [Suspect]
     Active Substance: NIVOLUMAB
     Indication: MALIGNANT MELANOMA
     Dosage: 61.6 MG, UNK
     Route: 065
     Dates: start: 20170710
  12. CIPROFLOXACIN. [Concomitant]
     Active Substance: CIPROFLOXACIN
     Indication: C-REACTIVE PROTEIN INCREASED
     Dosage: 1000 MG, UNK
     Route: 048
     Dates: start: 20180926, end: 20181001

REACTIONS (1)
  - Polyarthritis [Recovered/Resolved]

NARRATIVE: CASE EVENT DATE: 20181107
